FAERS Safety Report 5642577-4 (Version None)
Quarter: 2008Q1

REPORT INFORMATION
  Report Type: 
  Country: None (occurrence: None)
  Receive Date: 20080227
  Receipt Date: 20080227
  Transmission Date: 20080703
  Serious: Yes (Other)
  Sender: FDA-Public Use
  Company Number: None

PATIENT
  Sex: Male
  Weight: 87.5442 kg

DRUGS (5)
  1. FAZACLO (CLOZAPINE) 150MG - AVANIR PHARMACEUTICALS [Suspect]
     Indication: SCHIZOPHRENIA
     Dosage: 150 MG BID (TWICE DAILY) ORAL
     Route: 048
     Dates: start: 20080104, end: 20080128
  2. DIVALPROEX [Concomitant]
  3. OLANZAPINE [Concomitant]
  4. BENZTROPINE MESYLATE [Concomitant]
  5. CLONAZEPAM [Concomitant]

REACTIONS (3)
  - LETHARGY [None]
  - PANCREATITIS [None]
  - TACHYCARDIA [None]
